FAERS Safety Report 10420816 (Version 1)
Quarter: 2014Q3

REPORT INFORMATION
  Report Type: Spontaneous
  Country: US (occurrence: None)
  Receive Date: 20140829
  Receipt Date: 20140829
  Transmission Date: 20150326
  Serious: No
  Sender: FDA-Public Use
  Company Number: None

PATIENT
  Age: 59 Year
  Sex: Female

DRUGS (1)
  1. IMIQUIMOD. [Suspect]
     Active Substance: IMIQUIMOD
     Dosage: APPLY TO BACKOF HANDS?TWICE PER WEEKS?TOPICAL
     Route: 061

REACTIONS (2)
  - Drug ineffective [None]
  - Product packaging quantity issue [None]

NARRATIVE: CASE EVENT DATE: 20140813
